FAERS Safety Report 17283631 (Version 1)
Quarter: 2020Q1

REPORT INFORMATION
  Report Type: Spontaneous
  Country: CN (occurrence: CN)
  Receive Date: 20200117
  Receipt Date: 20200117
  Transmission Date: 20200409
  Serious: Yes (Death, Other)
  Sender: FDA-Public Use
  Company Number: CN-CHEPLA-C20200258_02

PATIENT
  Age: 57 Year
  Sex: Female

DRUGS (2)
  1. GANCICLOVIR. [Suspect]
     Active Substance: GANCICLOVIR
     Indication: PROPHYLAXIS
     Route: 042
  2. FOSCARNET [Suspect]
     Active Substance: FOSCARNET

REACTIONS (6)
  - Graft versus host disease [Unknown]
  - Cytomegalovirus viraemia [Unknown]
  - Drug ineffective [Unknown]
  - Encephalitis cytomegalovirus [Unknown]
  - Drug resistance [Unknown]
  - Septic shock [Fatal]
